FAERS Safety Report 19799444 (Version 1)
Quarter: 2021Q3

REPORT INFORMATION
  Report Type: Other
  Country: CL (occurrence: CL)
  Receive Date: 20210907
  Receipt Date: 20210907
  Transmission Date: 20211014
  Serious: Yes (Other)
  Sender: FDA-Public Use
  Company Number: CL-ROCHE-2771516

PATIENT
  Age: 76 Year
  Sex: Female

DRUGS (6)
  1. ONDANSETRON [Concomitant]
     Active Substance: ONDANSETRON
  2. KADCYLA [Suspect]
     Active Substance: ADO-TRASTUZUMAB EMTANSINE
     Indication: BREAST CANCER
     Route: 065
     Dates: start: 20210812
  3. HERCEPTIN [Suspect]
     Active Substance: TRASTUZUMAB
     Indication: BREAST CANCER
     Route: 058
     Dates: start: 202004
  4. RANITIDINE. [Concomitant]
     Active Substance: RANITIDINE
  5. CHLORPHENAMINE [Concomitant]
     Active Substance: CHLORPHENIRAMINE MALEATE
  6. DEXAMETHASONE. [Concomitant]
     Active Substance: DEXAMETHASONE

REACTIONS (14)
  - Nail infection [Not Recovered/Not Resolved]
  - Headache [Recovered/Resolved]
  - Onychoclasis [Unknown]
  - Pulmonary mass [Unknown]
  - Onychomadesis [Not Recovered/Not Resolved]
  - Vomiting [Recovered/Resolved]
  - Post-acute COVID-19 syndrome [Unknown]
  - Nail growth abnormal [Unknown]
  - Hyperaesthesia [Unknown]
  - Nail discolouration [Unknown]
  - Infection [Unknown]
  - Nausea [Unknown]
  - Mucosal inflammation [Unknown]
  - COVID-19 [Unknown]

NARRATIVE: CASE EVENT DATE: 20201112
